FAERS Safety Report 8814118 (Version 1)
Quarter: 2012Q4

REPORT INFORMATION
  Report Type: Spontaneous
  Country: US (occurrence: None)
  Receive Date: 20120925
  Receipt Date: 20120925
  Transmission Date: 20130627
  Serious: Yes (Hospitalization, Other)
  Sender: FDA-Public Use
  Company Number: 2012P1057080

PATIENT
  Age: 65 Year
  Sex: Male

DRUGS (2)
  1. FLUOXETINE [Suspect]
  2. DONEPEZIL [Suspect]

REACTIONS (5)
  - Agitation [None]
  - Faecal incontinence [None]
  - Salivary hypersecretion [None]
  - Abnormal behaviour [None]
  - Lacrimation increased [None]
